FAERS Safety Report 25573584 (Version 1)
Quarter: 2025Q3

REPORT INFORMATION
  Report Type: Spontaneous
  Country: EU (occurrence: EU)
  Receive Date: 20250717
  Receipt Date: 20250717
  Transmission Date: 20251020
  Serious: Yes (Death, Other)
  Sender: AMGEN
  Company Number: EU-AMGEN-FRASP2025134196

PATIENT

DRUGS (1)
  1. DARBEPOETIN ALFA [Suspect]
     Active Substance: DARBEPOETIN ALFA
     Indication: VEXAS syndrome
     Route: 065

REACTIONS (7)
  - Infection [Fatal]
  - Myelodysplastic syndrome [Fatal]
  - Venous thrombosis [Unknown]
  - Anaemia [Unknown]
  - Treatment failure [Unknown]
  - Loss of therapeutic response [Unknown]
  - Off label use [Unknown]
